FAERS Safety Report 23092497 (Version 1)
Quarter: 2023Q4

REPORT INFORMATION
  Report Type: Spontaneous
  Country: US (occurrence: US)
  Receive Date: 20231021
  Receipt Date: 20231021
  Transmission Date: 20240110
  Serious: Yes (Other)
  Sender: FDA-Public Use
  Company Number: US-TORRENT-00012890

PATIENT
  Age: 40 Year
  Sex: Male

DRUGS (1)
  1. PRAMIPEXOLE [Suspect]
     Active Substance: PRAMIPEXOLE
     Indication: Restless legs syndrome
     Dosage: 1 MG NIGHTLY
     Route: 065

REACTIONS (5)
  - Impulse-control disorder [Recovered/Resolved]
  - Condition aggravated [Recovered/Resolved]
  - Mental impairment [Recovered/Resolved]
  - Somnolence [Recovered/Resolved]
  - Cataplexy [Recovered/Resolved]
